FAERS Safety Report 8457245-3 (Version None)
Quarter: 2012Q2

REPORT INFORMATION
  Report Type: 
  Country: None (occurrence: None)
  Receive Date: 20120621
  Receipt Date: 20120619
  Transmission Date: 20120825
  Serious: Yes (Other)
  Sender: FDA-Public Use
  Company Number: US-FRI-1000031509

PATIENT
  Age: 79 Year
  Sex: Male

DRUGS (12)
  1. LANTUS [Concomitant]
     Indication: TYPE 2 DIABETES MELLITUS
  2. VITAMIN B-12 [Concomitant]
  3. FOLIC ACID [Concomitant]
  4. BYSTOLIC [Suspect]
     Indication: HEART RATE INCREASED
  5. BYSTOLIC [Suspect]
     Indication: HYPERTENSION
     Dosage: 5 MG
     Route: 048
     Dates: end: 20120501
  6. ASPIRIN [Concomitant]
  7. GLIMEPIRIDE [Concomitant]
     Indication: TYPE 2 DIABETES MELLITUS
  8. FUROSEMIDE [Concomitant]
     Dosage: 40 MG
  9. CARBIDOPA AND LEVODOPA [Concomitant]
     Indication: PARKINSON'S DISEASE
     Dosage: 25 MG/100MG TID
  10. SIMVASTATIN [Concomitant]
     Dosage: 40 MG
  11. HYDRALAZINE HYDROCHLORIDE [Concomitant]
     Dosage: 25 MG BID
  12. VITAMIN B6 [Concomitant]

REACTIONS (2)
  - WEIGHT DECREASED [None]
  - HYPOGLYCAEMIA [None]
